FAERS Safety Report 10608266 (Version 1)
Quarter: 2014Q4

REPORT INFORMATION
  Report Type: Spontaneous
  Country: JP (occurrence: JP)
  Receive Date: 20141125
  Receipt Date: 20141125
  Transmission Date: 20150529
  Serious: Yes (Hospitalization, Other)
  Sender: FDA-Public Use
  Company Number: JP-GILEAD-2014-0123914

PATIENT
  Age: 60 Year

DRUGS (3)
  1. HEPSERA [Suspect]
     Active Substance: ADEFOVIR DIPIVOXIL
     Dosage: 10 MG, QOD
     Route: 048
  2. HEPSERA [Suspect]
     Active Substance: ADEFOVIR DIPIVOXIL
     Indication: PRODUCT USED FOR UNKNOWN INDICATION
     Dosage: 10 MG, Q3DAYS
     Route: 048
  3. ZEFIX [Concomitant]
     Active Substance: LAMIVUDINE
     Route: 048

REACTIONS (16)
  - Ankle fracture [Unknown]
  - Pubis fracture [Unknown]
  - Metabolic acidosis [Unknown]
  - Renal impairment [Unknown]
  - Hypouricaemia [Unknown]
  - Blood creatinine increased [Unknown]
  - Mobility decreased [Unknown]
  - Pathological fracture [Unknown]
  - Hypophosphataemia [Unknown]
  - Urine phosphorus increased [Unknown]
  - Fanconi syndrome acquired [Unknown]
  - Hip fracture [Unknown]
  - Blood alkaline phosphatase increased [Unknown]
  - Pain [Recovered/Resolved]
  - Osteomalacia [Unknown]
  - Glucose urine [Unknown]
